FAERS Safety Report 8577669-3 (Version None)
Quarter: 2012Q3

REPORT INFORMATION
  Report Type: 
  Country: None (occurrence: None)
  Receive Date: 20120807
  Receipt Date: 20120731
  Transmission Date: 20120928
  Serious: Yes (Hospitalization, Other)
  Sender: FDA-Public Use
  Company Number: FR-ROCHE-1087937

PATIENT
  Sex: Female
  Weight: 70 kg

DRUGS (5)
  1. SERETIDE [Concomitant]
  2. CETIRIZINE HCL [Concomitant]
  3. XOLAIR [Suspect]
     Indication: ASTHMA
     Route: 058
     Dates: start: 20111201, end: 20120601
  4. SINGULAIR [Concomitant]
  5. OMEPRAZOLE [Concomitant]

REACTIONS (6)
  - WEIGHT DECREASED [None]
  - VOMITING [None]
  - NAUSEA [None]
  - DECREASED APPETITE [None]
  - DYSPEPSIA [None]
  - GASTRITIS [None]
